FAERS Safety Report 6018401-7 (Version None)
Quarter: 2008Q4

REPORT INFORMATION
  Report Type: 
  Country: None (occurrence: None)
  Receive Date: 20081223
  Receipt Date: 20081215
  Transmission Date: 20090506
  Serious: Yes (Other)
  Sender: FDA-Public Use
  Company Number: MX-AMGEN-US324819

PATIENT
  Sex: Female
  Weight: 55 kg

DRUGS (11)
  1. ENBREL [Suspect]
     Indication: RHEUMATOID ARTHRITIS
     Route: 058
     Dates: start: 20071022, end: 20081108
  2. ADALIMUMAB [Suspect]
     Indication: RHEUMATOID ARTHRITIS
     Dosage: 40 MG, FREQUENCY UNSPECIFIED
     Dates: start: 20060801, end: 20071001
  3. INFLIXIMAB [Suspect]
     Indication: RHEUMATOID ARTHRITIS
     Dosage: UNSPECIFIED
  4. LEDERTREXATE [Concomitant]
     Indication: RHEUMATOID ARTHRITIS
     Dosage: 5 TO 7.5 MG WEEKLY
     Dates: start: 20080813
  5. FOLIC ACID [Concomitant]
     Indication: RHEUMATOID ARTHRITIS
     Dates: start: 20040801
  6. CYMBALTA [Concomitant]
     Indication: FIBROMYALGIA
     Dates: start: 20080201
  7. TRAMADOL [Concomitant]
     Indication: ANALGESIA
     Dosage: 1-2 CAPSULES DAILY
     Dates: start: 20080301
  8. OMEPRAZOLE [Concomitant]
     Indication: GASTRITIS
     Dates: start: 20071001
  9. AZULFIDINE EN-TABS [Concomitant]
     Indication: RHEUMATOID ARTHRITIS
     Dates: start: 20080813
  10. KETOROLAC TROMETHAMINE [Concomitant]
     Indication: ANALGESIA
     Dosage: 1-2 CAPSULES DAILY
     Dates: start: 20080301
  11. ACECLOFENAC [Concomitant]
     Dates: start: 20071001

REACTIONS (5)
  - ANGIOEDEMA [None]
  - BRONCHITIS [None]
  - NO THERAPEUTIC RESPONSE [None]
  - RASH [None]
  - TUBERCULOSIS [None]
